FAERS Safety Report 6376391-1 (Version None)
Quarter: 2009Q3

REPORT INFORMATION
  Report Type: 
  Country: None (occurrence: None)
  Receive Date: 20090922
  Receipt Date: 20090922
  Transmission Date: 20100115
  Serious: Yes (Life-Threatening, Other)
  Sender: FDA-Public Use
  Company Number: None

PATIENT
  Age: 69 Year
  Sex: Male
  Weight: 90.7194 kg

DRUGS (1)
  1. TRILIPIX [Suspect]
     Dosage: 135MG ONCE
     Dates: start: 20090913, end: 20090920

REACTIONS (2)
  - INSOMNIA [None]
  - NIGHTMARE [None]
